FAERS Safety Report 11150835 (Version 1)
Quarter: 2015Q2

REPORT INFORMATION
  Report Type: Spontaneous
  Country: US (occurrence: None)
  Receive Date: 20150528
  Receipt Date: 20150528
  Transmission Date: 20150821
  Serious: Yes (Death)
  Sender: FDA-Public Use
  Company Number: CIO15032728

PATIENT
  Age: 37 Year
  Sex: Male

DRUGS (2)
  1. P+GUNKNONPGDPHNPH#(DIPHENHYDRAMINE HYDROCHLORIDE UNK UNK) UNKNOWN, UNKUNK [Suspect]
     Active Substance: DIPHENHYDRAMINE HYDROCHLORIDE
  2. ACETAMINOPHEN (PARACETAMOL) [Suspect]
     Active Substance: ACETAMINOPHEN

REACTIONS (3)
  - Unresponsive to stimuli [None]
  - Oral discharge [None]
  - Overdose [None]
